FAERS Safety Report 14635636 (Version 2)
Quarter: 2018Q2

REPORT INFORMATION
  Report Type: Spontaneous
  Country: BD (occurrence: BD)
  Receive Date: 20180314
  Receipt Date: 20180430
  Transmission Date: 20180711
  Serious: Yes (Death)
  Sender: FDA-Public Use
  Company Number: BD-JNJFOC-20180314094

PATIENT
  Age: 28 Year
  Sex: Female
  Weight: 40 kg

DRUGS (12)
  1. CAPREOMYCIN [Suspect]
     Active Substance: CAPREOMYCIN
     Indication: TUBERCULOSIS
     Route: 030
     Dates: start: 20160930, end: 20180121
  2. PARA-AMINOSALICYLIC ACID [Suspect]
     Active Substance: AMINOSALICYLIC ACID
     Indication: TUBERCULOSIS
     Route: 030
     Dates: start: 20160930, end: 20180121
  3. CLONAZEPAM. [Concomitant]
     Active Substance: CLONAZEPAM
     Indication: INSOMNIA
     Dosage: 0.5 UNSPECIFIED UNIT
     Route: 048
     Dates: start: 20160930
  4. BEDAQUILINE [Suspect]
     Active Substance: BEDAQUILINE
     Indication: TUBERCULOSIS
     Dosage: COMPLETED 24 WEEKS
     Route: 048
     Dates: end: 20170318
  5. PYRAZINAMIDE. [Suspect]
     Active Substance: PYRAZINAMIDE
     Indication: TUBERCULOSIS
     Route: 048
     Dates: start: 20160930, end: 20180121
  6. MECLIZINE [Concomitant]
     Active Substance: MECLIZINE HYDROCHLORIDE
     Indication: PROPHYLAXIS OF NAUSEA AND VOMITING
     Route: 048
     Dates: start: 20160930
  7. BEDAQUILINE [Suspect]
     Active Substance: BEDAQUILINE
     Indication: TUBERCULOSIS
     Route: 048
     Dates: start: 20160930
  8. AMOXICILLIN/CLAVULANIC ACID [Suspect]
     Active Substance: AMOXICILLIN\CLAVULANIC ACID
     Indication: TUBERCULOSIS
     Route: 048
     Dates: start: 20160930, end: 20180121
  9. LINEZOLID. [Suspect]
     Active Substance: LINEZOLID
     Indication: TUBERCULOSIS
     Route: 048
     Dates: start: 20160930, end: 20180121
  10. CLOFAZIMINE [Suspect]
     Active Substance: CLOFAZIMINE
     Indication: TUBERCULOSIS
     Route: 048
     Dates: start: 20160930, end: 20180121
  11. PYRIDOXINE [Concomitant]
     Active Substance: PYRIDOXINE
     Indication: PROPHYLAXIS
     Dosage: 100 UNSPECIFIED UNIT
     Route: 048
     Dates: start: 20160930
  12. OMEPRAZOLE. [Concomitant]
     Active Substance: OMEPRAZOLE
     Indication: GASTROINTESTINAL DISORDER THERAPY
     Dosage: 40 UNSPECIFIED UNIT
     Route: 048
     Dates: start: 20160930

REACTIONS (1)
  - Gallbladder cancer metastatic [Fatal]

NARRATIVE: CASE EVENT DATE: 201801
